FAERS Safety Report 6813921-7 (Version None)
Quarter: 2010Q3

REPORT INFORMATION
  Report Type: 
  Country: None (occurrence: None)
  Receive Date: 20100702
  Receipt Date: 20100622
  Transmission Date: 20110219
  Serious: Yes (Other)
  Sender: FDA-Public Use
  Company Number: US-RANBAXY-2010US-30852

PATIENT

DRUGS (1)
  1. ISOPTINE LP 240 MG, BIOSEDRA LABORATORY [Suspect]
     Indication: PRODUCT USED FOR UNKNOWN INDICATION
     Dosage: 16.8 GM
     Route: 048

REACTIONS (4)
  - BLOOD CREATINE PHOSPHOKINASE INCREASED [None]
  - CARDIOGENIC SHOCK [None]
  - DRUG TOXICITY [None]
  - MYALGIA [None]
